FAERS Safety Report 4513314-1 (Version None)
Quarter: 2004Q4

REPORT INFORMATION
  Report Type: 
  Country: None (occurrence: None)
  Receive Date: 20041130
  Receipt Date: 20040629
  Transmission Date: 20050328
  Serious: No
  Sender: FDA-Public Use
  Company Number: US-BRISTOL-MYERS SQUIBB COMPANY-12655700

PATIENT
  Age: 61 Year
  Sex: Male

DRUGS (6)
  1. ERBITUX [Suspect]
     Indication: COLON CANCER
     Route: 042
     Dates: start: 20040616, end: 20040616
  2. ATROPINE [Concomitant]
  3. BENADRYL [Concomitant]
  4. CAMPTOSAR [Concomitant]
     Dates: start: 20040616, end: 20040616
  5. KYTRIL [Concomitant]
  6. PERCOCET [Concomitant]

REACTIONS (1)
  - URTICARIA [None]
